FAERS Safety Report 13067953 (Version 3)
Quarter: 2017Q1

REPORT INFORMATION
  Report Type: Report from Study
  Country: US (occurrence: US)
  Receive Date: 20161228
  Receipt Date: 20170120
  Transmission Date: 20170428
  Serious: Yes (Life-Threatening, Hospitalization)
  Sender: FDA-Public Use
  Company Number: PHHO2014US016617

PATIENT
  Age: 46 Year
  Sex: Male
  Weight: 101.95 kg

DRUGS (20)
  1. SEROQUEL [Concomitant]
     Active Substance: QUETIAPINE FUMARATE
     Indication: INSOMNIA
     Dosage: 100 MG, UNK
     Route: 065
     Dates: start: 20141203, end: 20141204
  2. TRAZODONE [Concomitant]
     Active Substance: TRAZODONE HYDROCHLORIDE
     Indication: INSOMNIA
     Dosage: 100 MG, QD
     Route: 048
     Dates: start: 20160602, end: 20160603
  3. AIN457 [Suspect]
     Active Substance: SECUKINUMAB
     Indication: PSORIASIS
     Dosage: DOSE BLINDED
     Route: 058
     Dates: start: 20121227, end: 20161003
  4. GABAPENTIN. [Concomitant]
     Active Substance: GABAPENTIN
     Dosage: 600 MG, QD
     Route: 048
     Dates: start: 20141205, end: 20141206
  5. TRAZODONE [Concomitant]
     Active Substance: TRAZODONE HYDROCHLORIDE
     Dosage: 100 MG, QD
     Route: 048
     Dates: start: 20160826, end: 20160828
  6. HYDROCODONE [Concomitant]
     Active Substance: HYDROCODONE
     Indication: BACK PAIN
     Dosage: 1 DF, PRN (1 TAB 10/525)
     Route: 048
     Dates: start: 2001
  7. GABAPENTIN. [Concomitant]
     Active Substance: GABAPENTIN
     Dosage: 800 MG, QID
     Route: 048
     Dates: start: 20160301
  8. REMERON [Concomitant]
     Active Substance: MIRTAZAPINE
     Indication: INSOMNIA
     Dosage: 15 MG, QD
     Route: 048
     Dates: start: 20160603, end: 20160731
  9. LISINOPRIL AND HYDROCHLOROTHIAZIDE [Concomitant]
     Active Substance: HYDROCHLOROTHIAZIDE\LISINOPRIL
     Indication: HYPERTENSION
     Dosage: 1 DF, QD (TAB)
     Route: 048
     Dates: start: 20160301
  10. ATARAX [Concomitant]
     Active Substance: HYDROXYZINE HYDROCHLORIDE
     Indication: INSOMNIA
     Dosage: 25 MG, QD
     Route: 048
     Dates: start: 20160825, end: 20160827
  11. KLONOPIN [Concomitant]
     Active Substance: CLONAZEPAM
     Dosage: 0.5 MG, QD
     Route: 048
     Dates: start: 20160828
  12. LISINOPRIL. [Concomitant]
     Active Substance: LISINOPRIL
     Indication: HYPERTENSION
     Dosage: 25 MG, QD
     Route: 048
     Dates: start: 200108, end: 20160301
  13. NEURONTIN [Concomitant]
     Active Substance: GABAPENTIN
     Indication: BACK PAIN
     Dosage: 1200 MG, QHS (600 MG QD)
     Route: 065
     Dates: start: 20111015, end: 20141202
  14. GABAPENTIN. [Concomitant]
     Active Substance: GABAPENTIN
     Indication: BACK PAIN
     Dosage: 300 MG, QD
     Route: 048
     Dates: start: 20141203, end: 20141205
  15. GABAPENTIN. [Concomitant]
     Active Substance: GABAPENTIN
     Dosage: 800 MG, QD
     Route: 048
     Dates: start: 20141207, end: 20150107
  16. ACETAMINOPHEN. [Concomitant]
     Active Substance: ACETAMINOPHEN
     Indication: BACK PAIN
     Dosage: 650 MG, UNK
     Route: 065
     Dates: start: 20141202, end: 20141203
  17. XANAX [Concomitant]
     Active Substance: ALPRAZOLAM
     Indication: PRODUCT USED FOR UNKNOWN INDICATION
     Dosage: UNK
     Route: 065
     Dates: start: 20141130
  18. SEROQUEL [Concomitant]
     Active Substance: QUETIAPINE FUMARATE
     Dosage: 400 MG, QHS
     Route: 065
     Dates: start: 20141205, end: 20150110
  19. SEROQUEL [Concomitant]
     Active Substance: QUETIAPINE FUMARATE
     Dosage: (100-200 MG), PRN
     Route: 065
     Dates: start: 20150111
  20. KLONOPIN [Concomitant]
     Active Substance: CLONAZEPAM
     Indication: INSOMNIA
     Dosage: 0.5 MG, QD
     Route: 048
     Dates: start: 20160515, end: 20160603

REACTIONS (3)
  - Substance abuse [Recovered/Resolved]
  - Suicidal ideation [Recovered/Resolved]
  - Depression [Not Recovered/Not Resolved]

NARRATIVE: CASE EVENT DATE: 20140514
